FAERS Safety Report 6375168-0 (Version None)
Quarter: 2009Q3

REPORT INFORMATION
  Report Type: 
  Country: None (occurrence: None)
  Receive Date: 20090922
  Receipt Date: 20090922
  Transmission Date: 20100115
  Serious: No
  Sender: FDA-Public Use
  Company Number: None

PATIENT
  Age: 83 Year
  Sex: Female

DRUGS (5)
  1. FORTICAL [Suspect]
     Dosage: ONCE A DAY THROUGH NOSTRILS
     Dates: start: 20090701, end: 20090909
  2. PROSOM [Concomitant]
  3. VYTORIN [Concomitant]
  4. ZOLOFT [Concomitant]
  5. BLOOD PRESSURE MEDICATION [Concomitant]

REACTIONS (2)
  - PRODUCT QUALITY ISSUE [None]
  - RASH PRURITIC [None]
